FAERS Safety Report 20125218 (Version 1)
Quarter: 2021Q4

REPORT INFORMATION
  Report Type: Spontaneous
  Country: US (occurrence: US)
  Receive Date: 20211129
  Receipt Date: 20211129
  Transmission Date: 20220303
  Serious: Yes (Other)
  Sender: FDA-Public Use
  Company Number: US-NOVARTISPH-NVSC2021US265790

PATIENT
  Age: 70 Year
  Sex: Male

DRUGS (21)
  1. DOCETAXEL [Suspect]
     Active Substance: DOCETAXEL
     Indication: Hormone-refractory prostate cancer
     Dosage: CYCLE 1 DOCETAXEL ON ARC-6 CLINICAL TRIAL
     Route: 065
     Dates: start: 20210209
  2. DOCETAXEL [Suspect]
     Active Substance: DOCETAXEL
     Dosage: CYCLE 2 DOCETAXEL ON ARC-6 CLINICAL TRIAL
     Route: 065
     Dates: start: 20210311
  3. DOCETAXEL [Suspect]
     Active Substance: DOCETAXEL
     Dosage: CYCLE 3 DOCETAXEL ON ARC-6 CLINICAL TRIAL
     Route: 065
     Dates: start: 20210330
  4. DOCETAXEL [Suspect]
     Active Substance: DOCETAXEL
     Dosage: CYCLE 4 DOCETAXEL ON ARC-6 CLINICAL TRIAL
     Route: 065
     Dates: start: 20210420
  5. DOCETAXEL [Suspect]
     Active Substance: DOCETAXEL
     Dosage: CYCLE 5 DOCETAXEL ON ARC-6 CLINICAL TRIAL
     Route: 065
     Dates: start: 20210511
  6. DOCETAXEL [Suspect]
     Active Substance: DOCETAXEL
     Dosage: CYCLE 6 DOCETAXEL ON ARC-6 CLINICAL TRIAL
     Route: 065
     Dates: start: 20210601
  7. DOCETAXEL [Suspect]
     Active Substance: DOCETAXEL
     Dosage: CYCLE 7 DOCETAXEL ON ARC-6 CLINICAL TRIAL
     Route: 065
     Dates: start: 20210622
  8. DOCETAXEL [Suspect]
     Active Substance: DOCETAXEL
     Dosage: CYCLE 8 DOCETAXEL ON ARC-6 CLINICAL TRIAL
     Route: 065
     Dates: start: 20210714
  9. DOCETAXEL [Suspect]
     Active Substance: DOCETAXEL
     Dosage: CYCLE 9 DOCETAXEL ON ARC-6 CLINICAL TRIAL
     Route: 065
     Dates: start: 20210824
  10. DOCETAXEL [Suspect]
     Active Substance: DOCETAXEL
     Dosage: CYCLE 10 DOCETAXEL ON ARC-6 CLINICAL TRIAL
     Route: 065
     Dates: start: 20210914
  11. ABIRATERONE [Concomitant]
     Active Substance: ABIRATERONE
     Indication: Product used for unknown indication
     Dosage: UNK
     Route: 065
     Dates: start: 2019, end: 202101
  12. LUPRON DEPOT [Concomitant]
     Active Substance: LEUPROLIDE ACETATE
     Indication: Product used for unknown indication
     Dosage: 22.5 MG (INTO THE MUSCLE) (3 MONTHS AGO)
     Route: 065
     Dates: start: 2019
  13. LIPITOR [Concomitant]
     Active Substance: ATORVASTATIN CALCIUM
     Indication: Product used for unknown indication
     Dosage: UNK
     Route: 048
  14. CALCIUM CARBONATE [Concomitant]
     Active Substance: CALCIUM CARBONATE
     Indication: Product used for unknown indication
     Dosage: 1 DF, QD (CALCIUM CARBONATE 500 MG IS EQUIVALENT TO 200 MG ELEMENTAL CALCIUM)
     Route: 048
  15. CARBAMIDE PEROXIDE [Concomitant]
     Active Substance: CARBAMIDE PEROXIDE
     Indication: Excessive cerumen production
     Dosage: 5 TO 10 DROPS INTO AFFECTED EAR(S), BID (FOR UP TO 4 DAYS AS NEEDED)
     Route: 065
  16. CHANTIX [Concomitant]
     Active Substance: VARENICLINE TARTRATE
     Indication: Product used for unknown indication
     Dosage: UNK
     Route: 065
  17. CYANOCOBALAMIN [Concomitant]
     Active Substance: CYANOCOBALAMIN
     Indication: Product used for unknown indication
     Dosage: 1000 MCG, QD
     Route: 048
  18. TRIUMEQ [Concomitant]
     Active Substance: ABACAVIR SULFATE\DOLUTEGRAVIR SODIUM\LAMIVUDINE
     Indication: Asymptomatic HIV infection
     Dosage: 600-50-300 MG
     Route: 048
  19. SANCTURA [Concomitant]
     Active Substance: TROSPIUM CHLORIDE
     Indication: Pollakiuria
     Dosage: UNK
     Route: 048
  20. KENALOG [Concomitant]
     Active Substance: TRIAMCINOLONE ACETONIDE
     Indication: Rash
     Dosage: UNK (TOP CREA)
     Route: 065
  21. ZOFRAN [Concomitant]
     Active Substance: ONDANSETRON HYDROCHLORIDE
     Indication: Product used for unknown indication
     Dosage: UNK
     Route: 048

REACTIONS (10)
  - Hormone-refractory prostate cancer [Unknown]
  - Malignant neoplasm progression [Unknown]
  - Pulmonary embolism [Unknown]
  - Lymphadenopathy [Unknown]
  - Abdominal pain [Unknown]
  - Contusion [Unknown]
  - Arthralgia [Unknown]
  - Asthenia [Unknown]
  - Petechiae [Unknown]
  - Fatigue [Unknown]
